FAERS Safety Report 18461062 (Version 17)
Quarter: 2024Q3

REPORT INFORMATION
  Report Type: Report from Study
  Country: BR (occurrence: BR)
  Receive Date: 20201104
  Receipt Date: 20240704
  Transmission Date: 20241017
  Serious: Yes (Hospitalization, Disabling, Other)
  Sender: TAKEDA
  Company Number: BR-TAKEDA-BR202034395

PATIENT
  Age: 5 Year
  Sex: Male
  Weight: 33 kg

DRUGS (7)
  1. IDURSULFASE [Suspect]
     Active Substance: IDURSULFASE
     Indication: Mucopolysaccharidosis II
     Dosage: UNK
     Route: 065
     Dates: start: 201805
  2. IDURSULFASE [Suspect]
     Active Substance: IDURSULFASE
     Dosage: 3 DOSAGE FORM, 1/WEEK
     Route: 042
     Dates: start: 2020
  3. IDURSULFASE [Suspect]
     Active Substance: IDURSULFASE
     Dosage: UNK
     Route: 065
     Dates: start: 202102
  4. IDURSULFASE [Suspect]
     Active Substance: IDURSULFASE
     Dosage: UNK
     Route: 042
  5. IDURSULFASE [Suspect]
     Active Substance: IDURSULFASE
     Dosage: 2 DOSAGE FORM
     Route: 042
  6. IDURSULFASE [Suspect]
     Active Substance: IDURSULFASE
     Dosage: 12 DOSAGE FORM, MONTHLY
     Route: 042
  7. IDURSULFASE [Suspect]
     Active Substance: IDURSULFASE
     Dosage: 3 DOSAGE FORM, 1/WEEK
     Route: 042

REACTIONS (37)
  - Anaphylactic reaction [Recovered/Resolved]
  - Gait inability [Unknown]
  - General physical health deterioration [Unknown]
  - Rash erythematous [Recovered/Resolved]
  - Apnoea [Unknown]
  - Hydrocephalus [Unknown]
  - Pneumonia [Unknown]
  - Rash [Unknown]
  - Seizure [Unknown]
  - Infusion related hypersensitivity reaction [Unknown]
  - Drug hypersensitivity [Unknown]
  - Malaise [Recovered/Resolved with Sequelae]
  - Connective tissue disorder [Unknown]
  - Illness [Unknown]
  - Hernia [Unknown]
  - Dengue fever [Unknown]
  - Influenza [Unknown]
  - Blister [Unknown]
  - Respiratory disorder [Unknown]
  - Feeding tube user [Unknown]
  - Bedridden [Unknown]
  - Mobility decreased [Unknown]
  - Sitting disability [Unknown]
  - Loss of personal independence in daily activities [Unknown]
  - Joint stiffness [Unknown]
  - Multiple epiphyseal dysplasia [Unknown]
  - Head circumference abnormal [Unknown]
  - Obstructive sleep apnoea syndrome [Unknown]
  - Fatigue [Unknown]
  - Chills [Unknown]
  - Diarrhoea [Unknown]
  - Infusion related reaction [Unknown]
  - Erythema [Unknown]
  - Pyrexia [Unknown]
  - Stress [Unknown]
  - Product availability issue [Unknown]
  - Product dose omission issue [Recovered/Resolved with Sequelae]

NARRATIVE: CASE EVENT DATE: 20191030
